FAERS Safety Report 21690715 (Version 2)
Quarter: 2023Q1

REPORT INFORMATION
  Report Type: Report from Study
  Country: US (occurrence: US)
  Receive Date: 20221206
  Receipt Date: 20230207
  Transmission Date: 20230418
  Serious: Yes (Other)
  Sender: FDA-Public Use
  Company Number: US-ABBVIE-4225172

PATIENT
  Age: 80 Year
  Sex: Male

DRUGS (1)
  1. HUMIRA [Suspect]
     Active Substance: ADALIMUMAB
     Indication: Crohn^s disease
     Route: 058

REACTIONS (10)
  - Cataract [Not Recovered/Not Resolved]
  - Cough [Recovering/Resolving]
  - Pain [Recovering/Resolving]
  - Respiratory tract congestion [Recovering/Resolving]
  - Aortic rupture [Recovered/Resolved]
  - Gait disturbance [Recovering/Resolving]
  - Gastric infection [Recovering/Resolving]
  - Fatigue [Recovering/Resolving]
  - Cardiac arrest [Unknown]
  - Dyspnoea [Recovering/Resolving]

NARRATIVE: CASE EVENT DATE: 20221130
